FAERS Safety Report 9908603 (Version 1)
Quarter: 2014Q1

REPORT INFORMATION
  Report Type: Spontaneous
  Country: US (occurrence: None)
  Receive Date: 20140212
  Receipt Date: 20140212
  Transmission Date: 20141002
  Serious: Yes (Other)
  Sender: FDA-Public Use
  Company Number: None

PATIENT
  Age: 62 Year
  Sex: Female
  Weight: 44.45 kg

DRUGS (1)
  1. TRETINOIN [Suspect]
     Dosage: TUBE 20 GRAMS
     Dates: start: 20131120, end: 20131220

REACTIONS (9)
  - Facial pain [None]
  - Dry skin [None]
  - Lip swelling [None]
  - Lip blister [None]
  - Lip pain [None]
  - Glossodynia [None]
  - Oral pain [None]
  - Hypoaesthesia [None]
  - Burning sensation [None]
